FAERS Safety Report 25363202 (Version 1)
Quarter: 2025Q2

REPORT INFORMATION
  Report Type: Spontaneous
  Country: US (occurrence: None)
  Receive Date: 20250527
  Receipt Date: 20250527
  Transmission Date: 20250717
  Serious: Yes (Hospitalization)
  Sender: FDA-CTU
  Company Number: None

PATIENT
  Age: 71 Year
  Sex: Female
  Weight: 59.5 kg

DRUGS (1)
  1. ICODEXTRIN [Suspect]
     Active Substance: ICODEXTRIN

REACTIONS (3)
  - Peritonitis bacterial [None]
  - Pantoea agglomerans test positive [None]
  - Haemodialysis [None]

NARRATIVE: CASE EVENT DATE: 20250506
